FAERS Safety Report 4589294-X (Version None)
Quarter: 2005Q1

REPORT INFORMATION
  Report Type: 
  Country: None (occurrence: None)
  Receive Date: 20050216
  Receipt Date: 20050202
  Transmission Date: 20050727
  Serious: Yes (Other)
  Sender: FDA-Public Use
  Company Number: MET-US-05-00016

PATIENT
  Sex: Female

DRUGS (2)
  1. FORTAMET [Suspect]
     Indication: HYPERGLYCAEMIA
     Dosage: 1000 MG PO QD
     Route: 048
  2. LITHIUM [Concomitant]

REACTIONS (2)
  - BLOOD LACTIC ACID ABNORMAL [None]
  - RENAL FAILURE ACUTE [None]
